FAERS Safety Report 18325126 (Version 1)
Quarter: 2020Q3

REPORT INFORMATION
  Report Type: Spontaneous
  Country: DE (occurrence: DE)
  Receive Date: 20200929
  Receipt Date: 20200929
  Transmission Date: 20201103
  Serious: Yes (Hospitalization)
  Sender: FDA-Public Use
  Company Number: DE-MYLANLABS-2020M1081380

PATIENT
  Age: 89 Year
  Sex: Female
  Weight: 62.2 kg

DRUGS (10)
  1. EISEN                              /00023501/ [Concomitant]
     Active Substance: IRON
     Dosage: 100 MILLIGRAM, BID (1?0?1?0), KAPSELN
     Route: 048
  2. MEMANTINE. [Concomitant]
     Active Substance: MEMANTINE
     Dosage: 10 MILLIGRAM, QD (0?1?0?0), TABLETTEN
     Route: 048
  3. QUETIAPINE. [Suspect]
     Active Substance: QUETIAPINE
     Indication: PRODUCT USED FOR UNKNOWN INDICATION
     Dosage: 150 MILLIGRAM, BID (0?1?1?0), RETARD?TABLETTEN
     Route: 048
  4. QUETIAPINE. [Suspect]
     Active Substance: QUETIAPINE
     Dosage: 50 MILLIGRAM, (2?0?0?0), RETARD?TABLETTEN
     Route: 048
  5. MIRTAZAPINE. [Suspect]
     Active Substance: MIRTAZAPINE
     Indication: PRODUCT USED FOR UNKNOWN INDICATION
     Dosage: 15 MILLIGRAM, QD, (0?0?1?0), TABLETTEN
     Route: 048
  6. THIAMIN                            /00056101/ [Concomitant]
     Active Substance: THIAMINE
     Dosage: 200 MILLIGRAM, (0.5?0.5?0.5?0), TABLETTEN
     Route: 048
  7. FOLSAEURE [Concomitant]
     Active Substance: FOLIC ACID
     Dosage: 5 MILLIGRAM, QD (1?0?0?0), TABLETTEN
     Route: 048
  8. CELECOXIB. [Concomitant]
     Active Substance: CELECOXIB
     Dosage: 200 MILLIGRAM, QD (0?0?1?0), KAPSELN
     Route: 048
  9. CYANOCOBALAMIN. [Concomitant]
     Active Substance: CYANOCOBALAMIN
     Dosage: 1 MILLIGRAM, QD (1?0?0?0), TABLETTEN
     Route: 048
  10. PARACETAMOL [Concomitant]
     Active Substance: ACETAMINOPHEN
     Dosage: 500 MILLIGRAM, TID (1?1?1?0), TABLETTEN
     Route: 048

REACTIONS (2)
  - Aggression [Unknown]
  - Delirium [Unknown]

NARRATIVE: CASE EVENT DATE: 201909
